FAERS Safety Report 11863323 (Version 1)
Quarter: 2015Q4

REPORT INFORMATION
  Report Type: Report from Study
  Country: US (occurrence: US)
  Receive Date: 20151223
  Receipt Date: 20151223
  Transmission Date: 20160305
  Serious: Yes (Hospitalization, Other)
  Sender: FDA-Public Use
  Company Number: US-AMGEN-USASL2015135372

PATIENT
  Age: 61 Year
  Sex: Male

DRUGS (2)
  1. ENBREL [Suspect]
     Active Substance: ETANERCEPT
     Dosage: UNK
     Route: 065
     Dates: start: 2012
  2. ENBREL [Suspect]
     Active Substance: ETANERCEPT
     Indication: RHEUMATOID ARTHRITIS
     Dosage: 50 MG, QWK
     Route: 065
     Dates: start: 20050523

REACTIONS (15)
  - Injection site erythema [Unknown]
  - Injection site haemorrhage [Unknown]
  - Cardiac operation [Unknown]
  - Rheumatoid arthritis [Unknown]
  - Injection site swelling [Unknown]
  - Injection site irritation [Unknown]
  - Injection site pain [Unknown]
  - Pain [Unknown]
  - Injection site discolouration [Unknown]
  - Haemorrhoid operation [Unknown]
  - Injection site reaction [Unknown]
  - Wrong technique in product usage process [Unknown]
  - Ulcer [Unknown]
  - Atrial fibrillation [Unknown]
  - Memory impairment [Unknown]
